FAERS Safety Report 5028176-6 (Version None)
Quarter: 2006Q2

REPORT INFORMATION
  Report Type: 
  Country: None (occurrence: None)
  Receive Date: 20060609
  Receipt Date: 20060531
  Transmission Date: 20061013
  Serious: Yes (Other)
  Sender: FDA-Public Use
  Company Number: 219439

PATIENT
  Age: 73 Year
  Sex: Female

DRUGS (1)
  1. AVASTIN [Suspect]
     Indication: COLORECTAL CANCER METASTATIC
     Dosage: 300 MG
     Dates: start: 20051111

REACTIONS (4)
  - CHEST PAIN [None]
  - HYPERTENSION [None]
  - OXYGEN SATURATION DECREASED [None]
  - SINUS BRADYCARDIA [None]
